FAERS Safety Report 16890301 (Version 1)
Quarter: 2019Q4

REPORT INFORMATION
  Report Type: Report from Study
  Country: CA (occurrence: CA)
  Receive Date: 20191007
  Receipt Date: 20191007
  Transmission Date: 20200122
  Serious: Yes (Hospitalization)
  Sender: FDA-Public Use
  Company Number: CA-PFIZER INC-2019427705

PATIENT
  Age: 41 Year
  Sex: Male

DRUGS (4)
  1. METHOTREXATE SODIUM. [Suspect]
     Active Substance: METHOTREXATE SODIUM
     Indication: CROHN^S DISEASE
     Dosage: UNK
     Route: 058
  2. HUMIRA [Suspect]
     Active Substance: ADALIMUMAB
     Indication: CROHN^S DISEASE
     Dosage: 40.0 MG, 1 EVERY 2 WEEKS
     Route: 058
  3. HUMIRA [Suspect]
     Active Substance: ADALIMUMAB
     Indication: CROHN^S DISEASE
     Dosage: 40.0 MG, UNK
     Route: 058
  4. HUMIRA [Suspect]
     Active Substance: ADALIMUMAB
     Dosage: 40.0 MG, 1 EVERY 2 WEEKS
     Route: 058

REACTIONS (6)
  - Localised infection [Recovered/Resolved]
  - Rib fracture [Recovered/Resolved]
  - Swelling face [Recovered/Resolved]
  - Fall [Recovered/Resolved]
  - Fracture nonunion [Recovered/Resolved]
  - Joint swelling [Recovered/Resolved]
